FAERS Safety Report 10930800 (Version 4)
Quarter: 2015Q3

REPORT INFORMATION
  Report Type: Spontaneous
  Country: US (occurrence: US)
  Receive Date: 20150319
  Receipt Date: 20150810
  Transmission Date: 20151125
  Serious: Yes (Death, Other)
  Sender: FDA-Public Use
  Company Number: US-ASTRAZENECA-2013SE78381

PATIENT
  Age: 17409 Day
  Sex: Female
  Weight: 72.6 kg

DRUGS (34)
  1. JANUVIA [Suspect]
     Active Substance: SITAGLIPTIN PHOSPHATE
     Indication: TYPE 2 DIABETES MELLITUS
     Route: 048
     Dates: start: 201108
  2. METFORMIN [Concomitant]
     Active Substance: METFORMIN HYDROCHLORIDE
     Indication: DIABETES MELLITUS
     Route: 048
     Dates: start: 20100811
  3. GLIMEPIRIDE. [Concomitant]
     Active Substance: GLIMEPIRIDE
     Indication: DIABETES MELLITUS
     Route: 048
     Dates: start: 20100923
  4. DOCETAXEL. [Concomitant]
     Active Substance: DOCETAXEL
     Dosage: 25 MG/M2
     Dates: start: 20120302
  5. FOLFIRI [Concomitant]
     Active Substance: FLUOROURACIL\IRINOTECAN\LEUCOVORIN
     Dates: start: 201208
  6. PRAVASTATIN [Concomitant]
     Active Substance: PRAVASTATIN\PRAVASTATIN SODIUM
     Route: 048
     Dates: start: 20120207
  7. PROCHLORPERAZINE. [Concomitant]
     Active Substance: PROCHLORPERAZINE
     Route: 048
     Dates: start: 20120208
  8. JANUVIA [Suspect]
     Active Substance: SITAGLIPTIN PHOSPHATE
     Indication: TYPE 2 DIABETES MELLITUS
     Dosage: TAKE 1 TABLET BY MOUTH EVERY DAY
     Route: 048
     Dates: start: 20100621
  9. GEMCITABINE [Concomitant]
     Active Substance: GEMCITABINE\GEMCITABINE HYDROCHLORIDE
     Dosage: 1000M9/M2 D1, D8, D15 Q 28D
     Route: 065
     Dates: start: 20101007
  10. CISPLATIN. [Concomitant]
     Active Substance: CISPLATIN
     Route: 065
     Dates: start: 20101007
  11. SYNTHROID [Concomitant]
     Active Substance: LEVOTHYROXINE SODIUM
     Route: 048
     Dates: start: 20091217
  12. DIGITEK [Concomitant]
     Active Substance: DIGOXIN
     Route: 048
     Dates: start: 20060727
  13. BYETTA [Suspect]
     Active Substance: EXENATIDE
     Indication: TYPE 2 DIABETES MELLITUS
     Route: 065
     Dates: start: 20070519, end: 200901
  14. BYETTA [Suspect]
     Active Substance: EXENATIDE
     Indication: TYPE 2 DIABETES MELLITUS
     Route: 065
     Dates: start: 20080129
  15. JANUVIA [Suspect]
     Active Substance: SITAGLIPTIN PHOSPHATE
     Indication: TYPE 2 DIABETES MELLITUS
     Route: 048
     Dates: start: 20091124, end: 201107
  16. FOLFOX [Concomitant]
     Active Substance: FLUOROURACIL\LEUCOVORIN CALCIUM\OXALIPLATIN
     Dates: start: 20101122
  17. METOCLOPRAMID [Concomitant]
     Active Substance: METOCLOPRAMIDE
     Route: 048
     Dates: start: 20130222
  18. NOVOLOG U-100 [Concomitant]
     Dosage: 10 ML VL. 3 UNITS TWICE DAILY.
     Route: 065
     Dates: start: 20130226
  19. CELEXA [Concomitant]
     Active Substance: CITALOPRAM HYDROBROMIDE
     Route: 048
     Dates: start: 20090618
  20. CRESTOR [Concomitant]
     Active Substance: ROSUVASTATIN CALCIUM
     Indication: BLOOD CHOLESTEROL INCREASED
     Route: 048
     Dates: start: 20100811
  21. LOVENOX [Concomitant]
     Active Substance: ENOXAPARIN SODIUM
     Route: 058
     Dates: start: 20100811
  22. TYLENOL [Concomitant]
     Active Substance: ACETAMINOPHEN
     Dosage: 650 MG Q6H P
     Route: 048
     Dates: start: 20100813
  23. ONDANSETRON [Concomitant]
     Active Substance: ONDANSETRON
     Route: 048
     Dates: start: 20120208
  24. SPIRONOLACTONE. [Concomitant]
     Active Substance: SPIRONOLACTONE
     Route: 048
     Dates: start: 20120802
  25. FENTANYL. [Concomitant]
     Active Substance: FENTANYL
     Dosage: APPLY ONE PATCH TO THE SKIN EVERY 72 HOURS.
     Route: 065
     Dates: start: 20130627
  26. LASIX [Concomitant]
     Active Substance: FUROSEMIDE
     Route: 048
     Dates: start: 20120729
  27. POTASSIUM CL [Concomitant]
     Active Substance: POTASSIUM CHLORIDE
     Dosage: TAKE 1 TABLET BY MOUTH EVERY DAY WITH FUROSEMIDE
     Route: 048
     Dates: start: 20120416
  28. METOPROLOL/TOPROL [Concomitant]
     Indication: HYPERTENSION
     Route: 048
     Dates: start: 20100811
  29. ZOMETA [Concomitant]
     Active Substance: ZOLEDRONIC ACID
     Route: 065
     Dates: start: 20101118
  30. OXYCONTIN [Concomitant]
     Active Substance: OXYCODONE HYDROCHLORIDE
     Route: 048
     Dates: start: 20130207
  31. GLIMEPIRIDE. [Concomitant]
     Active Substance: GLIMEPIRIDE
     Indication: DIABETES MELLITUS
     Dosage: TAKE 1 TABLET BY MOUTH TWICE DAILY
     Route: 048
     Dates: start: 20100503
  32. ZETIA [Concomitant]
     Active Substance: EZETIMIBE
     Indication: BLOOD CHOLESTEROL INCREASED
     Route: 048
     Dates: start: 20100811
  33. DIOVAN [Concomitant]
     Active Substance: VALSARTAN
     Indication: HYPERTENSION
     Route: 048
     Dates: start: 20100811
  34. LISINOPRIL. [Concomitant]
     Active Substance: LISINOPRIL
     Route: 048
     Dates: start: 20110420

REACTIONS (12)
  - Metastases to lung [Unknown]
  - Acute kidney injury [Fatal]
  - Papillary thyroid cancer [Unknown]
  - Metabolic acidosis [Fatal]
  - Breast mass [Unknown]
  - Ascites [Unknown]
  - Breast abscess [Unknown]
  - Colorectal cancer [Unknown]
  - Metastases to peritoneum [Unknown]
  - Thyroid neoplasm [Unknown]
  - Metastases to liver [Unknown]
  - Pancreatic carcinoma metastatic [Fatal]

NARRATIVE: CASE EVENT DATE: 20100811
